FAERS Safety Report 8003078-1 (Version None)
Quarter: 2011Q4

REPORT INFORMATION
  Report Type: 
  Country: None (occurrence: None)
  Receive Date: 20111222
  Receipt Date: 20111212
  Transmission Date: 20120403
  Serious: Yes (Other)
  Sender: FDA-Public Use
  Company Number: US-MUTUAL PHARMACEUTICAL COMPANY, INC.-CLHC20110052

PATIENT
  Age: 48 Year
  Sex: Female

DRUGS (49)
  1. CYTOXAN [Suspect]
     Route: 042
     Dates: start: 20030301, end: 20030401
  2. IMURAN [Suspect]
     Route: 065
     Dates: start: 20070101, end: 20070301
  3. SERTRALINE HYDROCHLORIDE [Concomitant]
     Indication: PRODUCT USED FOR UNKNOWN INDICATION
     Route: 065
  4. REMICADE [Suspect]
     Indication: BEHCET'S SYNDROME
     Route: 042
     Dates: start: 20050401, end: 20050501
  5. PLAQUENIL [Suspect]
     Route: 065
     Dates: start: 20020601, end: 20040801
  6. TERBUTALINE SULFATE [Concomitant]
     Indication: PRODUCT USED FOR UNKNOWN INDICATION
     Route: 065
  7. PREGABALIN [Concomitant]
     Indication: PRODUCT USED FOR UNKNOWN INDICATION
     Route: 065
  8. ACYCLOVIR [Concomitant]
     Indication: PRODUCT USED FOR UNKNOWN INDICATION
     Route: 065
  9. PREDNISONE TAB [Suspect]
     Indication: BEHCET'S SYNDROME
     Route: 065
  10. CYCLOSERINE [Suspect]
     Indication: BEHCET'S SYNDROME
     Route: 065
     Dates: start: 20000501, end: 20010106
  11. CYTOXAN [Suspect]
     Route: 042
     Dates: start: 20030801, end: 20030801
  12. PLAQUENIL [Suspect]
     Indication: BEHCET'S SYNDROME
     Route: 065
     Dates: start: 19990701, end: 20020501
  13. THEOPHYLLINE [Concomitant]
     Indication: PRODUCT USED FOR UNKNOWN INDICATION
     Route: 065
  14. COLCHICINE [Suspect]
     Indication: BEHCET'S SYNDROME
     Route: 065
     Dates: start: 19991001, end: 20021201
  15. COLCHICINE [Suspect]
     Route: 065
     Dates: start: 20040801
  16. REMICADE [Suspect]
     Route: 042
     Dates: start: 20050501, end: 20050701
  17. REMICADE [Suspect]
     Route: 042
     Dates: start: 20050701, end: 20050901
  18. REMICADE [Suspect]
     Route: 042
     Dates: start: 20050901, end: 20060201
  19. ENBREL [Suspect]
     Indication: BEHCET'S SYNDROME
     Route: 065
     Dates: start: 20040901, end: 20050201
  20. CYTOXAN [Suspect]
     Route: 042
     Dates: start: 20030201, end: 20030201
  21. CYTOXAN [Suspect]
     Route: 042
     Dates: start: 20030301, end: 20030301
  22. PLAQUENIL [Suspect]
     Route: 065
     Dates: start: 20040801
  23. LEUKERAN [Suspect]
     Indication: BEHCET'S SYNDROME
     Route: 065
     Dates: start: 20011101, end: 20020401
  24. ERYTHROMYCIN [Concomitant]
     Indication: PRODUCT USED FOR UNKNOWN INDICATION
     Route: 065
  25. RITUXAN [Suspect]
     Route: 042
     Dates: start: 20060705, end: 20060705
  26. CYTOXAN [Suspect]
     Route: 042
     Dates: start: 20031001, end: 20040501
  27. LEUKERAN [Suspect]
     Route: 065
     Dates: start: 20020601, end: 20020901
  28. ESOMEPRAZOLE MAGNESIUM [Concomitant]
     Indication: PRODUCT USED FOR UNKNOWN INDICATION
     Route: 065
  29. PENTOXIFYLLINE [Concomitant]
     Indication: PRODUCT USED FOR UNKNOWN INDICATION
     Route: 065
  30. FENTANYL-100 [Concomitant]
     Indication: PRODUCT USED FOR UNKNOWN INDICATION
     Route: 062
  31. IMIQUIMOD [Concomitant]
     Route: 061
  32. CYTOXAN [Suspect]
     Indication: BEHCET'S SYNDROME
     Route: 042
     Dates: start: 20021201, end: 20021201
  33. CYTOXAN [Suspect]
     Route: 042
     Dates: start: 20030501, end: 20030701
  34. IMURAN [Suspect]
     Indication: BEHCET'S SYNDROME
     Route: 065
     Dates: start: 20050201, end: 20050401
  35. CELLCEPT [Suspect]
     Indication: BEHCET'S SYNDROME
     Route: 065
     Dates: start: 20010101, end: 20010901
  36. ARAVA [Suspect]
     Indication: BEHCET'S SYNDROME
     Route: 065
     Dates: start: 20070601
  37. FLUTICASONE PROPIONATE/SALMETEROL [Concomitant]
     Indication: PRODUCT USED FOR UNKNOWN INDICATION
     Route: 065
  38. FOLIC ACID [Concomitant]
     Indication: PRODUCT USED FOR UNKNOWN INDICATION
     Route: 065
  39. DAPSONE [Suspect]
     Indication: BEHCET'S SYNDROME
     Route: 065
     Dates: start: 19990901, end: 20000501
  40. IPRATROPIUM BROMIDE AND ALBUTEROL SULFATE [Concomitant]
     Indication: PRODUCT USED FOR UNKNOWN INDICATION
     Route: 065
  41. RITUXAN [Suspect]
     Indication: BEHCET'S SYNDROME
     Route: 042
     Dates: start: 20060601, end: 20060601
  42. METHOTREXATE [Suspect]
     Indication: BEHCET'S SYNDROME
     Route: 065
     Dates: start: 19981001, end: 19990701
  43. CYTOXAN [Suspect]
     Route: 042
     Dates: start: 20030101, end: 20030101
  44. CYTOXAN [Suspect]
     Route: 042
     Dates: start: 20030901, end: 20030901
  45. DAPSONE [Suspect]
     Route: 065
     Dates: start: 20030601, end: 20050901
  46. LEUKERAN [Suspect]
     Route: 065
     Dates: start: 20020401, end: 20020601
  47. FUROSEMIDE [Concomitant]
     Indication: PRODUCT USED FOR UNKNOWN INDICATION
     Route: 065
  48. IMMUNE GLOBULIN NOS [Concomitant]
     Indication: IMMUNODEFICIENCY COMMON VARIABLE
     Route: 042
  49. IMIQUIMOD [Concomitant]
     Indication: ACTINIC KERATOSIS
     Route: 061

REACTIONS (1)
  - SQUAMOUS CELL CARCINOMA OF SKIN [None]
